FAERS Safety Report 8816844 (Version 1)
Quarter: 2012Q4

REPORT INFORMATION
  Report Type: Spontaneous
  Country: US (occurrence: None)
  Receive Date: 20121002
  Receipt Date: 20121002
  Transmission Date: 20130627
  Serious: Yes (Other)
  Sender: FDA-Public Use
  Company Number: None

PATIENT
  Age: 37 Year
  Sex: Female
  Weight: 63.5 kg

DRUGS (1)
  1. MIRENA IUD [Suspect]
     Indication: BIRTH CONTROL
     Dates: start: 20120807, end: 20120928

REACTIONS (14)
  - Mood swings [None]
  - Anxiety [None]
  - Crying [None]
  - Depression [None]
  - Anger [None]
  - Thinking abnormal [None]
  - Aggression [None]
  - Violence-related symptom [None]
  - Self-injurious ideation [None]
  - Weight increased [None]
  - Headache [None]
  - Sleep disorder [None]
  - Menometrorrhagia [None]
  - Mental disorder [None]
